FAERS Safety Report 12160730 (Version 3)
Quarter: 2018Q3

REPORT INFORMATION
  Report Type: Spontaneous
  Country: US (occurrence: US)
  Receive Date: 20160308
  Receipt Date: 20180905
  Transmission Date: 20181010
  Serious: Yes (Other)
  Sender: FDA-Public Use
  Company Number: US-ASTRAZENECA-2016SE18379

PATIENT
  Age: 79 Year
  Sex: Male
  Weight: 68 kg

DRUGS (20)
  1. GLIMEPIRIDE. [Concomitant]
     Active Substance: GLIMEPIRIDE
     Indication: TYPE 2 DIABETES MELLITUS
     Route: 048
  2. METFORMIN [Concomitant]
     Active Substance: METFORMIN HYDROCHLORIDE
     Indication: BLOOD GLUCOSE ABNORMAL
     Route: 048
     Dates: start: 2004
  3. BYDUREON [Suspect]
     Active Substance: EXENATIDE
     Indication: TYPE 2 DIABETES MELLITUS
     Route: 058
     Dates: start: 2014
  4. PRILOSEC OTC [Suspect]
     Active Substance: OMEPRAZOLE MAGNESIUM
     Dosage: 20MG EVERY THIRD DAY
     Route: 048
  5. PRILOSEC OTC [Suspect]
     Active Substance: OMEPRAZOLE MAGNESIUM
     Route: 048
     Dates: start: 201801
  6. CICLOPIROX. [Concomitant]
     Active Substance: CICLOPIROX
     Indication: ONYCHOMYCOSIS
     Dosage: 77 PERCENT FOR TOENAIL FUNGUS TWICE A DAY
     Route: 061
  7. PREDNISONE. [Concomitant]
     Active Substance: PREDNISONE
     Indication: POLYCYTHAEMIA VERA
     Route: 048
  8. BYETTA [Suspect]
     Active Substance: EXENATIDE
     Route: 065
  9. METFORMIN [Concomitant]
     Active Substance: METFORMIN HYDROCHLORIDE
     Indication: TYPE 2 DIABETES MELLITUS
     Route: 048
     Dates: start: 2004
  10. ASPIRIN. [Concomitant]
     Active Substance: ASPIRIN
     Indication: CARDIOVASCULAR EVENT PROPHYLAXIS
     Route: 048
     Dates: start: 1985
  11. UROXATAL [Concomitant]
     Route: 048
     Dates: start: 2001
  12. METFORMIN [Concomitant]
     Active Substance: METFORMIN HYDROCHLORIDE
     Indication: TYPE 2 DIABETES MELLITUS
     Route: 048
     Dates: start: 2004
  13. CLOPIDOGREL [Concomitant]
     Active Substance: CLOPIDOGREL BISULFATE
     Indication: ANTICOAGULANT THERAPY
     Dates: start: 2008
  14. ALFUZOSIN [Concomitant]
     Active Substance: ALFUZOSIN
     Indication: PROSTATIC DISORDER
  15. MULTIVITAMIN [Concomitant]
     Active Substance: VITAMINS
     Dosage: DAILY
     Dates: start: 1976
  16. ERTACZO [Concomitant]
     Active Substance: SERTACONAZOLE NITRATE
     Indication: ONYCHOMYCOSIS
     Dosage: ERTACZO 2 PERCENT TOPICAL CREAM TWICE A DAY
     Route: 061
  17. BYETTA [Suspect]
     Active Substance: EXENATIDE
     Route: 065
  18. METFORMIN [Concomitant]
     Active Substance: METFORMIN HYDROCHLORIDE
     Indication: BLOOD GLUCOSE ABNORMAL
     Route: 048
     Dates: start: 2004
  19. AVODART [Concomitant]
     Active Substance: DUTASTERIDE
     Indication: PROSTATIC DISORDER
     Route: 048
     Dates: start: 2008
  20. LANTUS [Concomitant]
     Active Substance: INSULIN GLARGINE
     Indication: BLOOD GLUCOSE ABNORMAL
     Route: 058

REACTIONS (12)
  - Cataract [Unknown]
  - Off label use [Unknown]
  - Parkinson^s disease [Unknown]
  - Polycythaemia [Unknown]
  - Injection site extravasation [Recovered/Resolved]
  - Device malfunction [Unknown]
  - Dysphagia [Not Recovered/Not Resolved]
  - Injection site mass [Unknown]
  - Injection site haemorrhage [Unknown]
  - Incorrect dose administered [Unknown]
  - Transient ischaemic attack [Unknown]
  - Pain in extremity [Unknown]

NARRATIVE: CASE EVENT DATE: 2014
